FAERS Safety Report 4298969-1 (Version None)
Quarter: 2004Q1

REPORT INFORMATION
  Report Type: 
  Country: None (occurrence: None)
  Receive Date: 20040219
  Receipt Date: 20030929
  Transmission Date: 20041129
  Serious: Yes (Hospitalization)
  Sender: FDA-Public Use
  Company Number: PHNU2003DE03534

PATIENT
  Age: 79 Year
  Sex: Male

DRUGS (3)
  1. PARACETAMOL [Suspect]
  2. LOCOL [Suspect]
     Indication: HYPERCHOLESTEROLAEMIA
     Route: 048
     Dates: end: 20030101
  3. LOCOL [Suspect]
     Route: 048
     Dates: start: 20030901, end: 20030925

REACTIONS (3)
  - BLOOD CREATININE INCREASED [None]
  - BLOOD UREA INCREASED [None]
  - NEPHRITIS INTERSTITIAL [None]
